FAERS Safety Report 23068910 (Version 1)
Quarter: 2023Q4

REPORT INFORMATION
  Report Type: Spontaneous
  Country: CA (occurrence: CA)
  Receive Date: 20231016
  Receipt Date: 20231016
  Transmission Date: 20240110
  Serious: Yes (Other)
  Sender: FDA-Public Use
  Company Number: CA-BAYER-2023A142232

PATIENT
  Age: 62 Year
  Sex: Male
  Weight: 77.098 kg

DRUGS (1)
  1. GADOBUTROL [Suspect]
     Active Substance: GADOBUTROL
     Dosage: 12 ML, ONCE
     Route: 040

REACTIONS (1)
  - Medical device site erythema [Recovered/Resolved]
